FAERS Safety Report 6493346-7 (Version None)
Quarter: 2009Q4

REPORT INFORMATION
  Report Type: 
  Country: None (occurrence: None)
  Receive Date: 20091214
  Receipt Date: 20091204
  Transmission Date: 20100525
  Serious: Yes (Hospitalization)
  Sender: FDA-Public Use
  Company Number: US-JNJFOC-20091202347

PATIENT
  Sex: Female
  Weight: 76.66 kg

DRUGS (7)
  1. DURAGESIC-100 [Suspect]
     Indication: BACK PAIN
     Route: 062
  2. DURAGESIC-100 [Suspect]
     Indication: NECK PAIN
     Route: 062
  3. DURAGESIC-100 [Suspect]
     Route: 062
  4. DURAGESIC-100 [Suspect]
     Route: 062
  5. TOPAMAX [Concomitant]
     Indication: MIGRAINE
     Route: 048
  6. HYDROCODONE [Concomitant]
     Indication: PAIN
     Route: 048
  7. UNKNOWN MEDICATION [Concomitant]
     Route: 065

REACTIONS (4)
  - BLINDNESS UNILATERAL [None]
  - PANCREATITIS [None]
  - PRODUCT ADHESION ISSUE [None]
  - THERAPEUTIC RESPONSE DECREASED [None]
